FAERS Safety Report 7464418-5 (Version None)
Quarter: 2011Q2

REPORT INFORMATION
  Report Type: 
  Country: None (occurrence: None)
  Receive Date: 20110509
  Receipt Date: 20110504
  Transmission Date: 20111010
  Serious: No
  Sender: FDA-Public Use
  Company Number: US-PFIZER INC-2011096354

PATIENT
  Sex: Male

DRUGS (3)
  1. GENOTROPIN [Suspect]
     Dosage: 2.2 MG, UNK
  2. VITAMIN D [Concomitant]
     Dosage: UNK
  3. CALCIUM [Concomitant]
     Dosage: UNK

REACTIONS (3)
  - CHEST PAIN [None]
  - THYROID FUNCTION TEST ABNORMAL [None]
  - HEART RATE INCREASED [None]
